FAERS Safety Report 13737507 (Version 3)
Quarter: 2017Q3

REPORT INFORMATION
  Report Type: Spontaneous
  Country: DE (occurrence: DE)
  Receive Date: 20170710
  Receipt Date: 20170712
  Transmission Date: 20171127
  Serious: Yes (Other)
  Sender: FDA-Public Use
  Company Number: DE-SA-2017SA117830

PATIENT
  Sex: Female
  Weight: 49 kg

DRUGS (3)
  1. CLEXANE [Suspect]
     Active Substance: ENOXAPARIN SODIUM
     Indication: DEEP VEIN THROMBOSIS
     Dosage: 2X 45MG
     Route: 065
  2. CLEXANE [Suspect]
     Active Substance: ENOXAPARIN SODIUM
     Indication: PULMONARY EMBOLISM
     Dosage: 2X 45MG
     Route: 065
  3. ZINC. [Concomitant]
     Active Substance: ZINC
     Route: 065

REACTIONS (2)
  - Pericardial effusion [Unknown]
  - Malaise [Unknown]
